FAERS Safety Report 20768864 (Version 1)
Quarter: 2022Q2

REPORT INFORMATION
  Report Type: Other
  Country: US (occurrence: None)
  Receive Date: 20220429
  Receipt Date: 20220429
  Transmission Date: 20220721
  Serious: Yes (Disabling)
  Sender: FDA-Public Use
  Company Number: US-ROCHE-3081398

PATIENT
  Age: 27 Year
  Sex: Female

DRUGS (1)
  1. EVRYSDI [Suspect]
     Active Substance: RISDIPLAM
     Indication: Spinal muscular atrophy
     Route: 048

REACTIONS (5)
  - Tachycardia [Recovering/Resolving]
  - Vertigo [Unknown]
  - Hypertension [Unknown]
  - Irritability [Unknown]
  - Insomnia [Unknown]
